FAERS Safety Report 14698385 (Version 1)
Quarter: 2018Q1

REPORT INFORMATION
  Report Type: Spontaneous
  Country: PL (occurrence: PL)
  Receive Date: 20180330
  Receipt Date: 20180330
  Transmission Date: 20180509
  Serious: Yes (Hospitalization)
  Sender: FDA-Public Use
  Company Number: PL-ABBVIE-18K-129-2302992-00

PATIENT
  Sex: Male

DRUGS (2)
  1. HUMIRA [Suspect]
     Active Substance: ADALIMUMAB
     Indication: ANKYLOSING SPONDYLITIS
     Route: 058
     Dates: start: 20180215, end: 20180301
  2. HUMIRA [Suspect]
     Active Substance: ADALIMUMAB
     Route: 058
     Dates: start: 20180315, end: 20180315

REACTIONS (4)
  - Arthritis bacterial [Unknown]
  - Rash pustular [Unknown]
  - C-reactive protein increased [Unknown]
  - Dermatitis [Unknown]

NARRATIVE: CASE EVENT DATE: 2018
